FAERS Safety Report 14600641 (Version 3)
Quarter: 2018Q2

REPORT INFORMATION
  Report Type: Report from Study
  Country: DE (occurrence: DE)
  Receive Date: 20180305
  Receipt Date: 20180627
  Transmission Date: 20180711
  Serious: Yes (Death, Life-Threatening, Hospitalization, Other)
  Sender: FDA-Public Use
  Company Number: DE-PFIZER INC-2018090985

PATIENT
  Age: 56 Year
  Sex: Female
  Weight: 49 kg

DRUGS (63)
  1. CALCIUM FOLINATE [Suspect]
     Active Substance: LEUCOVORIN CALCIUM
     Indication: COLORECTAL CANCER
     Dosage: 240 MG, UNK
     Route: 042
     Dates: start: 20150603, end: 20150805
  2. CALCIUM FOLINATE [Suspect]
     Active Substance: LEUCOVORIN CALCIUM
     Dosage: 312 MG, UNK
     Route: 042
     Dates: start: 20160108, end: 20160212
  3. IRINOTECAN HCL [Suspect]
     Active Substance: IRINOTECAN HYDROCHLORIDE
     Indication: COLORECTAL CANCER
     Dosage: 200 MG, UNK
     Route: 042
     Dates: start: 20150603, end: 20150630
  4. 5-FLUOROURACIL [Suspect]
     Active Substance: FLUOROURACIL
     Dosage: 312 MG, 2X/WEEK
     Route: 040
     Dates: start: 20160108, end: 20160112
  5. HALOPERIDOL. [Concomitant]
     Active Substance: HALOPERIDOL
     Dosage: 0.03 MG, UNK
     Route: 042
     Dates: start: 20150901, end: 20150902
  6. NOVALGIN (METAMIZOLE SODIUM) [Concomitant]
     Active Substance: METAMIZOLE SODIUM
     Dosage: 1500 MG, 1X/DAY
     Route: 048
     Dates: start: 20150902
  7. EFFENTORA [Concomitant]
     Active Substance: FENTANYL CITRATE
     Indication: PAIN
     Dosage: 100 UG, UNK
     Route: 048
     Dates: end: 20150721
  8. MIRTAZAPIN [Concomitant]
     Active Substance: MIRTAZAPINE
     Indication: ADJUSTMENT DISORDER WITH DEPRESSED MOOD
     Dosage: 15 MG, 1X/DAY (0-0-1)
     Route: 048
  9. BEPANTHENE [Concomitant]
     Active Substance: DEXPANTHENOL
     Indication: PROPHYLAXIS
  10. CALCIUM FOLINATE [Suspect]
     Active Substance: LEUCOVORIN CALCIUM
     Dosage: 468 MG, 2X/WEEK
     Route: 042
     Dates: start: 20160126, end: 20160126
  11. IRINOTECAN HCL [Suspect]
     Active Substance: IRINOTECAN HYDROCHLORIDE
     Dosage: 125 MG, UNK
     Route: 042
     Dates: start: 20150723, end: 20150805
  12. OXALIPLATIN. [Suspect]
     Active Substance: OXALIPLATIN
     Dosage: 78 MG, 2X/WEEK
     Route: 042
     Dates: start: 20160212, end: 20160212
  13. 5-FLUOROURACIL [Suspect]
     Active Substance: FLUOROURACIL
     Indication: COLORECTAL CANCER
     Dosage: 4000 MG, 2X/WEEK
     Route: 042
     Dates: start: 20150603, end: 20150805
  14. HALOPERIDOL. [Concomitant]
     Active Substance: HALOPERIDOL
     Indication: VOMITING
     Dosage: 0.07 MG, UNK
     Route: 042
     Dates: start: 20150810, end: 20150826
  15. HALOPERIDOL. [Concomitant]
     Active Substance: HALOPERIDOL
     Dosage: 2.5 MG, UNK
     Route: 042
     Dates: start: 20150721, end: 20150810
  16. NEXIUM [Concomitant]
     Active Substance: ESOMEPRAZOLE MAGNESIUM
     Dosage: UNK
     Route: 042
     Dates: start: 20160225
  17. NOVAMINSULFON [Concomitant]
     Active Substance: METAMIZOLE
     Dosage: 1500 MG, 1X/DAY
     Route: 048
     Dates: start: 20150902, end: 20151103
  18. PEGFILGRASTIM [Concomitant]
     Active Substance: PEGFILGRASTIM
     Indication: PROPHYLAXIS
     Dosage: 6 MG, 1X/DAY (SINCE 2ND CYCLE OF THERAPY)
     Route: 058
     Dates: start: 20150620, end: 20151023
  19. ZOFRAN [Concomitant]
     Active Substance: ONDANSETRON HYDROCHLORIDE
     Indication: VOMITING
     Dosage: 8 MG, 1X/DAY (1-0-0)
     Route: 048
     Dates: start: 20150605
  20. CALCIUM FOLINATE [Suspect]
     Active Substance: LEUCOVORIN CALCIUM
     Dosage: 456 MG, UNK
     Route: 042
     Dates: start: 20150903, end: 20151104
  21. CALCIUM FOLINATE [Suspect]
     Active Substance: LEUCOVORIN CALCIUM
     Dosage: 240-468 MG
     Route: 042
     Dates: start: 20150603, end: 20160212
  22. AVASTIN [Suspect]
     Active Substance: BEVACIZUMAB
     Dosage: 245 MG, UNK
     Route: 042
  23. OXALIPLATIN. [Suspect]
     Active Substance: OXALIPLATIN
     Dosage: 117 MG, 2X/WEEK
     Route: 042
     Dates: start: 20160126, end: 20160126
  24. 5-FLUOROURACIL [Suspect]
     Active Substance: FLUOROURACIL
     Dosage: 2280 MG, 2X/WEEK
     Route: 042
     Dates: start: 20151124, end: 20151126
  25. 5-FLUOROURACIL [Suspect]
     Active Substance: FLUOROURACIL
     Dosage: 456 MG, 2X/WEEK
     Route: 040
     Dates: start: 20150903, end: 20151104
  26. 5-FLUOROURACIL [Suspect]
     Active Substance: FLUOROURACIL
     Dosage: 468 MG, 2X/WEEK
     Route: 040
     Dates: start: 20160126, end: 20160126
  27. HALOPERIDOL. [Concomitant]
     Active Substance: HALOPERIDOL
     Dosage: 5 GTT, 1X/DAY
     Dates: start: 20150902, end: 201511
  28. NOVAMINSULFON [Concomitant]
     Active Substance: METAMIZOLE
     Dosage: 1000 MG, UNK
     Route: 048
     Dates: start: 20160212
  29. ONDANSETRON [Concomitant]
     Active Substance: ONDANSETRON
     Indication: NAUSEA
     Dosage: 8 MG, 1X/DAY
     Route: 048
     Dates: start: 20150604
  30. NOVAMINSULFON [Concomitant]
     Active Substance: METAMIZOLE
     Dosage: 5 MG, UNK
     Route: 065
  31. NOVAMINSULFON [Concomitant]
     Active Substance: METAMIZOLE
     Dosage: 10.5 MG, UNK
     Route: 042
     Dates: start: 20150810, end: 20150826
  32. NOVAMINSULFON [Concomitant]
     Active Substance: METAMIZOLE
     Dosage: 1000 MG, EVERY 3 WEEKS
     Route: 042
     Dates: start: 20160225, end: 20160226
  33. NOVAMINSULFON [Concomitant]
     Active Substance: METAMIZOLE
     Dosage: 5000 MG, UNK
     Route: 042
     Dates: start: 20160225
  34. NOVALGIN (METAMIZOLE SODIUM) [Concomitant]
     Active Substance: METAMIZOLE SODIUM
     Indication: TUMOUR PAIN
     Dosage: 2000 MG, 1X/DAY
     Route: 048
     Dates: start: 20150602, end: 20150728
  35. NOVALGIN (METAMIZOLE SODIUM) [Concomitant]
     Active Substance: METAMIZOLE SODIUM
     Indication: BACK PAIN
     Dosage: 3 G, 1X/DAY
     Route: 042
     Dates: start: 20160225, end: 20160226
  36. NOVALGIN (METAMIZOLE SODIUM) [Concomitant]
     Active Substance: METAMIZOLE SODIUM
     Dosage: 1 G, 1X/DAY
     Route: 042
     Dates: start: 20160225, end: 20160226
  37. AVASTIN [Suspect]
     Active Substance: BEVACIZUMAB
     Indication: COLORECTAL CANCER
     Dosage: 245 MG, 2X/WEEK (LAST DOSE PRIOR TO SAE ON 30JUN2015 AT 5 MG/KG)
     Route: 042
     Dates: start: 20150603, end: 20151124
  38. OXALIPLATIN. [Suspect]
     Active Substance: OXALIPLATIN
     Dosage: 114 MG, 2X/WEEK
     Route: 042
     Dates: start: 20150903, end: 20151104
  39. OXALIPLATIN. [Suspect]
     Active Substance: OXALIPLATIN
     Dosage: 78 MG, 2X/WEEK
     Route: 042
     Dates: start: 20160108, end: 20160108
  40. 5-FLUOROURACIL [Suspect]
     Active Substance: FLUOROURACIL
     Dosage: 3420 MG, 2X/WEEK
     Route: 042
     Dates: start: 20150903, end: 20151106
  41. 5-FLUOROURACIL [Suspect]
     Active Substance: FLUOROURACIL
     Dosage: 3510 MG, 2X/WEEK
     Route: 042
     Dates: start: 20160126, end: 20160127
  42. 5-FLUOROURACIL [Suspect]
     Active Substance: FLUOROURACIL
     Dosage: 304 MG, 2X/WEEK
     Route: 040
     Dates: start: 20151124, end: 20151124
  43. HALOPERIDOL. [Concomitant]
     Active Substance: HALOPERIDOL
     Dosage: 15 GTT, 1X/DAY
     Route: 048
     Dates: start: 20150902, end: 20151101
  44. NOVAMINSULFON [Concomitant]
     Active Substance: METAMIZOLE
     Indication: COLORECTAL CANCER METASTATIC
     Dosage: 7.5 MG, UNK
     Route: 042
     Dates: start: 20150826, end: 20150831
  45. NOVALGIN (METAMIZOLE SODIUM) [Concomitant]
     Active Substance: METAMIZOLE SODIUM
     Dosage: 15000 MG, 1X/DAY
     Route: 042
     Dates: start: 20150721, end: 20150810
  46. MIRTAZAPIN [Concomitant]
     Active Substance: MIRTAZAPINE
     Dosage: 15 MG, 1X/DAY
     Route: 048
     Dates: start: 20150605, end: 20151208
  47. 5-FLUOROURACIL [Suspect]
     Active Substance: FLUOROURACIL
     Dosage: 2340 MG, 2X/WEEK
     Route: 042
     Dates: start: 20160108, end: 20160110
  48. 5-FLUOROURACIL [Suspect]
     Active Substance: FLUOROURACIL
     Dosage: 2340 MG, 2X/WEEK
     Route: 042
     Dates: start: 20160626
  49. HALOPERIDOL. [Concomitant]
     Active Substance: HALOPERIDOL
     Dosage: 0.04 MG, UNK
     Route: 042
     Dates: start: 20150831, end: 20150901
  50. NEXIUM [Concomitant]
     Active Substance: ESOMEPRAZOLE MAGNESIUM
     Indication: PROPHYLAXIS
     Dosage: 40 MG, 1X/DAY
     Route: 048
     Dates: start: 20150602, end: 20160224
  51. NOVAMINSULFON [Concomitant]
     Active Substance: METAMIZOLE
     Dosage: 4.5 MG, UNK
     Route: 042
     Dates: start: 20150901, end: 20150902
  52. KEPPRA [Concomitant]
     Active Substance: LEVETIRACETAM
     Dosage: 1000 MG, 1X/DAY
     Route: 042
     Dates: start: 20160301
  53. BEPANTHENE [Concomitant]
     Active Substance: DEXPANTHENOL
     Indication: MUCOSAL INFLAMMATION
     Dosage: 1-1-1
     Route: 048
  54. CALCIUM FOLINATE [Suspect]
     Active Substance: LEUCOVORIN CALCIUM
     Dosage: 304 MG, 2X/WEEK
     Route: 042
     Dates: start: 20151124, end: 20151124
  55. AVASTIN [Suspect]
     Active Substance: BEVACIZUMAB
     Dosage: 260 MG, UNK
     Route: 042
     Dates: start: 20160212, end: 20160212
  56. HALOPERIDOL. [Concomitant]
     Active Substance: HALOPERIDOL
     Dosage: 0.05 MG, UNK
     Route: 042
     Dates: start: 20150826, end: 20150831
  57. NOVALGIN (METAMIZOLE SODIUM) [Concomitant]
     Active Substance: METAMIZOLE SODIUM
     Dosage: 500 MG, DAILY
     Dates: start: 20150602, end: 20150728
  58. NOVALGIN (METAMIZOLE SODIUM) [Concomitant]
     Active Substance: METAMIZOLE SODIUM
     Dosage: 5000 MG, UNK
     Dates: start: 20150721, end: 20150810
  59. OXALIPLATIN. [Suspect]
     Active Substance: OXALIPLATIN
     Indication: COLORECTAL CANCER
     Dosage: 103.36 MG, 2X/WEEK
     Route: 042
     Dates: start: 20150603, end: 20150805
  60. OXALIPLATIN. [Suspect]
     Active Substance: OXALIPLATIN
     Dosage: 76 MG, 2X/WEEK
     Route: 042
     Dates: start: 20151124, end: 20151124
  61. NOVAMINSULFON [Concomitant]
     Active Substance: METAMIZOLE
     Dosage: 6 MG, UNK
     Route: 042
     Dates: start: 20150831, end: 20150901
  62. NOVAMINSULFON [Concomitant]
     Active Substance: METAMIZOLE
     Dosage: 500 MG, 1X/DAY
     Route: 048
     Dates: start: 20150902, end: 20151103
  63. NOVALGIN (METAMIZOLE SODIUM) [Concomitant]
     Active Substance: METAMIZOLE SODIUM
     Dosage: 500 MG, DAILY
     Dates: start: 20150902

REACTIONS (8)
  - Optic nerve disorder [Unknown]
  - Headache [Not Recovered/Not Resolved]
  - Loss of consciousness [Fatal]
  - Pneumonia [Recovered/Resolved]
  - Neutropenia [Recovered/Resolved]
  - Pulmonary embolism [Recovered/Resolved]
  - Venous thrombosis limb [Recovered/Resolved]
  - Overdose [Unknown]

NARRATIVE: CASE EVENT DATE: 20150617
